FAERS Safety Report 6326359-6 (Version None)
Quarter: 2009Q3

REPORT INFORMATION
  Report Type: 
  Country: None (occurrence: None)
  Receive Date: 20090821
  Receipt Date: 20090812
  Transmission Date: 20100115
  Serious: Yes (Other)
  Sender: FDA-Public Use
  Company Number: JPI-P-008282

PATIENT
  Age: 63 Year
  Sex: Female

DRUGS (6)
  1. XYREM [Suspect]
     Indication: DRUG USE FOR UNKNOWN INDICATION
     Dosage: (UKNOWN), ORAL
     Route: 048
     Dates: start: 20070101
  2. TOBACCO [Suspect]
     Indication: TOBACCO USER
     Dosage: 2 PACKS OF CIGARETTES DAILY
     Dates: start: 19590101
  3. ESOMEPRAZOLE [Concomitant]
  4. SERTRALINE HCL [Concomitant]
  5. LISINOPRIL [Concomitant]
  6. MONTELUKAST [Concomitant]

REACTIONS (1)
  - LUNG NEOPLASM MALIGNANT [None]
